FAERS Safety Report 22694474 (Version 3)
Quarter: 2025Q1

REPORT INFORMATION
  Report Type: Spontaneous
  Country: IT (occurrence: IT)
  Receive Date: 20230712
  Receipt Date: 20250317
  Transmission Date: 20250409
  Serious: Yes (Disabling, Other)
  Sender: CELLTRION
  Company Number: IT-CELLTRION INC.-2023IT013365

PATIENT

DRUGS (2)
  1. RITUXIMAB [Suspect]
     Active Substance: RITUXIMAB
     Indication: Anti-myelin-associated glycoprotein associated polyneuropathy
     Route: 042
  2. METHYLPREDNISOLONE [Suspect]
     Active Substance: METHYLPREDNISOLONE
     Indication: Anti-myelin-associated glycoprotein associated polyneuropathy
     Route: 042

REACTIONS (3)
  - Guillain-Barre syndrome [Recovering/Resolving]
  - Condition aggravated [Recovering/Resolving]
  - Intentional product use issue [Unknown]
